FAERS Safety Report 18199368 (Version 6)
Quarter: 2020Q4

REPORT INFORMATION
  Report Type: Report from Study
  Country: US (occurrence: US)
  Receive Date: 20200826
  Receipt Date: 20201231
  Transmission Date: 20210113
  Serious: Yes (Other)
  Sender: FDA-Public Use
  Company Number: US-GLAXOSMITHKLINE-US2020AMR170085

PATIENT
  Age: 72 Year
  Sex: Female
  Weight: 65.7 kg

DRUGS (4)
  1. NIRAPARIB [Suspect]
     Active Substance: NIRAPARIB
     Dosage: 100 MG, QD
     Dates: start: 20200923
  2. NIRAPARIB [Suspect]
     Active Substance: NIRAPARIB
     Indication: OVARIAN CANCER
     Dosage: 200 MG, QD (OTHER SOURCE)
     Dates: start: 20200819
  3. NIRAPARIB [Suspect]
     Active Substance: NIRAPARIB
     Dosage: 200 MG, QD
     Dates: start: 20200826, end: 20200909
  4. NIRAPARIB [Suspect]
     Active Substance: NIRAPARIB
     Dosage: 200 MG, QD
     Dates: start: 202010

REACTIONS (6)
  - Nausea [Recovered/Resolved]
  - Alopecia [Unknown]
  - Platelet count decreased [Not Recovered/Not Resolved]
  - Constipation [Recovered/Resolved]
  - Congenital mitral valve incompetence [Unknown]
  - Fatigue [Not Recovered/Not Resolved]

NARRATIVE: CASE EVENT DATE: 20200826
